FAERS Safety Report 18974653 (Version 2)
Quarter: 2021Q2

REPORT INFORMATION
  Report Type: Spontaneous
  Country: US (occurrence: US)
  Receive Date: 20210305
  Receipt Date: 20210528
  Transmission Date: 20210717
  Serious: Yes (Hospitalization, Disabling, Other)
  Sender: FDA-Public Use
  Company Number: US-ABBVIE-18K-163-3125951-00

PATIENT

DRUGS (1)
  1. IMBRUVICA [Suspect]
     Active Substance: IBRUTINIB
     Indication: MANTLE CELL LYMPHOMA
     Dosage: DOSAGE FORM: UNSPECIFIED
     Route: 048

REACTIONS (14)
  - Myocardial infarction [Unknown]
  - Neoplasm malignant [Unknown]
  - Renal failure [Unknown]
  - Diarrhoea [Unknown]
  - Anaemia [Unknown]
  - Arthralgia [Unknown]
  - Hepatotoxicity [Unknown]
  - Thrombocytopenia [Unknown]
  - Cerebrovascular accident [Unknown]
  - Neutropenia [Unknown]
  - Haemorrhage [Unknown]
  - Atrial fibrillation [Unknown]
  - Infection [Unknown]
  - Hypertension [Unknown]
